FAERS Safety Report 24108960 (Version 1)
Quarter: 2024Q3

REPORT INFORMATION
  Report Type: Spontaneous
  Country: IT (occurrence: None)
  Receive Date: 20240718
  Receipt Date: 20240718
  Transmission Date: 20241016
  Serious: Yes (Other)
  Sender: ISTITUTO BICHIMICO ITALIANO GIOVANNI LORENZINI (IBIGEN)
  Company Number: None

PATIENT
  Age: 71 Year
  Sex: Female

DRUGS (7)
  1. BROMAZEPAM [Concomitant]
     Active Substance: BROMAZEPAM
  2. ENOXAPARIN [Concomitant]
     Active Substance: ENOXAPARIN
  3. LANSOPRAZOLE [Concomitant]
     Active Substance: LANSOPRAZOLE
  4. METRONIDAZOLE [Concomitant]
     Active Substance: METRONIDAZOLE
  5. PIPERACILLIN SODIUM\TAZOBACTAM SODIUM [Suspect]
     Active Substance: PIPERACILLIN SODIUM\TAZOBACTAM SODIUM
     Indication: Bacterial abdominal infection
     Dosage: 4,5 GR X3 ()
     Route: 042
     Dates: start: 20240622, end: 20240624
  6. DULOXETINE [Concomitant]
     Active Substance: DULOXETINE
  7. SODIO BICARBONATO [Concomitant]

REACTIONS (3)
  - Fall [Recovering/Resolving]
  - Delirium [Recovering/Resolving]
  - Hypokalaemia [Recovering/Resolving]

NARRATIVE: CASE EVENT DATE: 20240621
